FAERS Safety Report 6545697-5 (Version None)
Quarter: 2010Q1

REPORT INFORMATION
  Report Type: 
  Country: None (occurrence: None)
  Receive Date: 20100121
  Receipt Date: 20100113
  Transmission Date: 20100710
  Serious: Yes (Death, Life-Threatening, Hospitalization, Other)
  Sender: FDA-Public Use
  Company Number: PHHY2009JP07699

PATIENT
  Sex: Male
  Weight: 42 kg

DRUGS (9)
  1. ICL670A ICL+DISTAB [Suspect]
     Indication: MYELOFIBROSIS
     Dosage: 875 MG DAILY
     Route: 048
     Dates: start: 20080804, end: 20081218
  2. ICL670A ICL+DISTAB [Suspect]
     Indication: IRON OVERLOAD
     Dosage: 875 MG DAILY
     Route: 048
     Dates: start: 20090117, end: 20090206
  3. ICL670A ICL+DISTAB [Suspect]
     Dosage: 1000 MG DAILY
     Route: 048
     Dates: start: 20090207, end: 20090430
  4. ICL670A ICL+DISTAB [Suspect]
     Dosage: 1375 MG/DAY
     Route: 048
     Dates: start: 20090501, end: 20091005
  5. NORVASC [Concomitant]
     Indication: HYPERTENSION
     Dosage: 2.5 MG, UNK
     Route: 048
     Dates: start: 20000101, end: 20091014
  6. GASTER D [Concomitant]
     Indication: HYPERTENSION
     Dosage: 40 MG, UNK
     Route: 048
     Dates: start: 20000101, end: 20090615
  7. ZYLORIC [Concomitant]
     Indication: HYPERURICAEMIA
     Dosage: 200 MG, UNK
     Route: 048
     Dates: end: 20091014
  8. OMEPRAL [Concomitant]
     Dosage: 10 MG, UNK
     Route: 048
     Dates: start: 20090616, end: 20091014
  9. PREDNISOLONE [Concomitant]
     Dosage: 10 MG, UNK
     Route: 048

REACTIONS (6)
  - ANASTOMOTIC LEAK [None]
  - GASTROINTESTINAL PERFORATION [None]
  - LAPAROTOMY [None]
  - PNEUMONIA [None]
  - SERUM FERRITIN INCREASED [None]
  - SURGERY [None]
